FAERS Safety Report 5885293-6 (Version None)
Quarter: 2008Q3

REPORT INFORMATION
  Report Type: 
  Country: None (occurrence: None)
  Receive Date: 20080915
  Receipt Date: 20080915
  Transmission Date: 20090109
  Serious: Yes (Life-Threatening, Other)
  Sender: FDA-Public Use
  Company Number: None

PATIENT
  Age: 53 Year
  Sex: Male
  Weight: 101.6057 kg

DRUGS (1)
  1. BENICAR [Suspect]
     Indication: HYPERTENSION
     Dosage: 1 TAB ONCE A DAY
     Dates: start: 20080910, end: 20080912

REACTIONS (4)
  - COUGH [None]
  - DRY THROAT [None]
  - DYSPNOEA [None]
  - THROAT TIGHTNESS [None]
